FAERS Safety Report 4525318-3 (Version None)
Quarter: 2004Q4

REPORT INFORMATION
  Report Type: 
  Country: None (occurrence: None)
  Receive Date: 20041117
  Receipt Date: 20040308
  Transmission Date: 20050328
  Serious: Yes (Other)
  Sender: FDA-Public Use
  Company Number: 2004S1001156

PATIENT
  Age: 27 Year
  Sex: Male

DRUGS (6)
  1. CLOZAPINE [Suspect]
     Indication: SCHIZOPHRENIA
     Dosage: 450MG QD, THEN UNK, TITRATED TO 200MG QD, ORAL
     Route: 048
     Dates: start: 20030101
  2. CLOZAPINE [Suspect]
     Indication: SCHIZOPHRENIA
     Dosage: 450MG QD, THEN UNK, TITRATED TO 200MG QD, ORAL
     Route: 048
     Dates: start: 20040106
  3. HALOPERIDOL LACTATE [Concomitant]
  4. BENZTROPINE MESYLATE [Concomitant]
  5. FLUOXETINE HYDROCHLORIDE [Concomitant]
  6. CLONAZEPAM [Concomitant]

REACTIONS (3)
  - GRAND MAL CONVULSION [None]
  - HEART RATE INCREASED [None]
  - PETIT MAL EPILEPSY [None]
